FAERS Safety Report 5041394-6 (Version None)
Quarter: 2006Q2

REPORT INFORMATION
  Report Type: 
  Country: None (occurrence: None)
  Receive Date: 20060628
  Receipt Date: 20060615
  Transmission Date: 20061013
  Serious: Yes (Hospitalization, Other)
  Sender: FDA-Public Use
  Company Number: HQWYE545220SEP05

PATIENT
  Age: 76 Year
  Sex: Female
  Weight: 59.3 kg

DRUGS (5)
  1. MYLOTARG [Suspect]
     Indication: ACUTE MYELOID LEUKAEMIA
     Dosage: 10 MG 1X PER 1 DAY, INTRAVENOUS
     Route: 042
     Dates: start: 20050909, end: 20050909
  2. CYTARABINE [Suspect]
     Indication: ACUTE MYELOID LEUKAEMIA
     Dosage: 3.36 G 2X PER 1 DAY
     Dates: start: 20050910, end: 20050910
  3. CYTARABINE [Suspect]
     Indication: ACUTE MYELOID LEUKAEMIA
     Dosage: 3.36 G 2X PER 1 DAY
     Dates: start: 20050915, end: 20050915
  4. NOVANTRONE [Suspect]
     Indication: ACUTE MYELOID LEUKAEMIA
     Dosage: 50.4 MG 1X PER 1 DAY
     Dates: start: 20050910, end: 20050910
  5. NOVANTRONE [Suspect]
     Indication: ACUTE MYELOID LEUKAEMIA
     Dosage: 50.4 MG 1X PER 1 DAY
     Dates: start: 20050915, end: 20050915

REACTIONS (10)
  - ACUTE MYELOID LEUKAEMIA RECURRENT [None]
  - ASTHENIA [None]
  - CHILLS [None]
  - DECREASED APPETITE [None]
  - DIZZINESS [None]
  - FATIGUE [None]
  - FEBRILE NEUTROPENIA [None]
  - INFUSION RELATED REACTION [None]
  - PANCYTOPENIA [None]
  - PYREXIA [None]
